FAERS Safety Report 5494182-0 (Version None)
Quarter: 2007Q4

REPORT INFORMATION
  Report Type: 
  Country: None (occurrence: None)
  Receive Date: 20071024
  Receipt Date: 20071016
  Transmission Date: 20080405
  Serious: Yes (Hospitalization, Other)
  Sender: FDA-Public Use
  Company Number: PHEH2007US13661

PATIENT
  Age: 72 Year
  Sex: Female
  Weight: 75.283 kg

DRUGS (10)
  1. NORMODYNE [Concomitant]
     Indication: HYPERTENSION
     Dosage: 200 MG, BID
     Route: 048
  2. AMLODIPINE BESYLATE [Concomitant]
     Indication: HYPERTENSION
  3. PROTONIX [Concomitant]
  4. CELEBREX [Concomitant]
     Indication: ARTHRITIS
     Dosage: 200 MG, BID
     Route: 048
  5. ZANTAC [Concomitant]
     Dosage: 300 MG, QD
     Route: 048
  6. VICODIN [Concomitant]
     Dosage: UNK, PRN
  7. ALLEGRA [Concomitant]
     Dosage: UNK, PRN
  8. OXYCODONE HCL [Concomitant]
     Dosage: 40 MG, Q12H
  9. TAXOL [Concomitant]
  10. ZOMETA [Suspect]
     Dates: start: 20040101

REACTIONS (20)
  - ABSCESS ORAL [None]
  - BONE DISORDER [None]
  - BONE GRAFT [None]
  - DENTAL PLAQUE [None]
  - ENDODONTIC PROCEDURE [None]
  - ERYTHEMA [None]
  - GINGIVITIS [None]
  - HAEMOPTYSIS [None]
  - LOOSE TOOTH [None]
  - MUCOSAL INFLAMMATION [None]
  - ORAL CAVITY FISTULA [None]
  - OSTEONECROSIS [None]
  - PAIN IN JAW [None]
  - PRIMARY SEQUESTRUM [None]
  - PURULENT DISCHARGE [None]
  - RESORPTION BONE INCREASED [None]
  - SEQUESTRECTOMY [None]
  - TOOTH EXTRACTION [None]
  - TOOTH INFECTION [None]
  - WOUND DEBRIDEMENT [None]
